FAERS Safety Report 8817962 (Version 1)
Quarter: 2012Q4

REPORT INFORMATION
  Report Type: 
  Country: AU (occurrence: AU)
  Receive Date: 20121001
  Receipt Date: 20121001
  Transmission Date: 20130627
  Serious: Yes (Life-Threatening)
  Sender: FDA-Public Use
  Company Number: AU-ASTRAZENECA-2012SE74436

PATIENT
  Age: 23 Year

DRUGS (3)
  1. PROPOFOL [Suspect]
     Dosage: ONE DOSE UNSPECIFIED
     Route: 042
     Dates: start: 20120717, end: 20120717
  2. FENTANYL [Suspect]
     Dosage: ONE DOSE UNSPECIFIED
     Route: 065
     Dates: start: 20120717, end: 20120717
  3. SUXAMETHONIUM [Suspect]
     Dosage: ONE DOSE UNSPECIFIED
     Route: 065
     Dates: start: 20120717

REACTIONS (5)
  - Tachycardia [Recovered/Resolved]
  - Tryptase increased [Recovered/Resolved]
  - Anaphylactic reaction [Recovered/Resolved]
  - Mechanical ventilation complication [Recovered/Resolved]
  - Hypotension [Recovered/Resolved]
